FAERS Safety Report 18605134 (Version 1)
Quarter: 2020Q4

REPORT INFORMATION
  Report Type: Spontaneous
  Country: US (occurrence: US)
  Receive Date: 20201211
  Receipt Date: 20201211
  Transmission Date: 20210114
  Serious: No
  Sender: FDA-Public Use
  Company Number: US-JNJFOC-20201133798

PATIENT
  Age: 60 Year
  Sex: Female
  Weight: 56.7 kg

DRUGS (5)
  1. TOPAMAX [Suspect]
     Active Substance: TOPIRAMATE
     Indication: MIGRAINE
     Route: 048
     Dates: start: 20200314, end: 202011
  2. TRAMADOL. [Concomitant]
     Active Substance: TRAMADOL
     Indication: SPINAL DISORDER
     Route: 065
  3. RIZATRIPTAN. [Concomitant]
     Active Substance: RIZATRIPTAN
     Indication: MIGRAINE
     Route: 065
     Dates: start: 20200314
  4. IMITREX [Concomitant]
     Active Substance: SUMATRIPTAN SUCCINATE
     Indication: MIGRAINE
     Route: 065
  5. TRAMADOL. [Concomitant]
     Active Substance: TRAMADOL
     Indication: PAIN

REACTIONS (1)
  - Migraine [Unknown]

NARRATIVE: CASE EVENT DATE: 202009
